FAERS Safety Report 19972568 (Version 1)
Quarter: 2021Q4

REPORT INFORMATION
  Report Type: Spontaneous
  Country: US (occurrence: US)
  Receive Date: 20211016
  Receipt Date: 20211016
  Transmission Date: 20220303
  Serious: Yes (Hospitalization)
  Sender: FDA-Public Use
  Company Number: None

PATIENT
  Age: 59 Year
  Sex: Female
  Weight: 100 kg

DRUGS (3)
  1. TAXOTERE [Suspect]
     Active Substance: DOCETAXEL
     Dates: end: 20210923
  2. PERTUZUMAB [Suspect]
     Active Substance: PERTUZUMAB
     Dates: end: 20210923
  3. HERCEPTIN [Suspect]
     Active Substance: TRASTUZUMAB
     Dates: end: 20210923

REACTIONS (4)
  - Catheter site pain [None]
  - Catheter site erythema [None]
  - Deep vein thrombosis [None]
  - Therapy interrupted [None]

NARRATIVE: CASE EVENT DATE: 20211014
